FAERS Safety Report 5023085-0 (Version None)
Quarter: 2006Q2

REPORT INFORMATION
  Report Type: 
  Country: None (occurrence: None)
  Receive Date: 20060605
  Receipt Date: 20060519
  Transmission Date: 20061013
  Serious: Yes (Life-Threatening, Hospitalization)
  Sender: FDA-Public Use
  Company Number: GXKR2006BJ02850

PATIENT
  Sex: 0

DRUGS (3)
  1. PENICILLIN V [Suspect]
  2. ASPIRIN [Concomitant]
  3. CHLOROQUINE (CHLOROQUINE) [Concomitant]

REACTIONS (2)
  - PYREXIA [None]
  - TOXIC EPIDERMAL NECROLYSIS [None]
